FAERS Safety Report 8419062-X (Version None)
Quarter: 2012Q2

REPORT INFORMATION
  Report Type: 
  Country: None (occurrence: None)
  Receive Date: 20120607
  Receipt Date: 20120605
  Transmission Date: 20120825
  Serious: Yes (Death)
  Sender: FDA-Public Use
  Company Number: PHEH2012US010723

PATIENT
  Age: 38 Year
  Sex: Male

DRUGS (3)
  1. FANAPT [Suspect]
     Indication: SCHIZOPHRENIA
     Dosage: 8 MG, BID
     Route: 048
     Dates: start: 20120101
  2. PRILOSEC [Concomitant]
  3. SYNTHROID [Concomitant]

REACTIONS (1)
  - CARDIAC ARREST [None]
